FAERS Safety Report 12455789 (Version 2)
Quarter: 2016Q3

REPORT INFORMATION
  Report Type: Spontaneous
  Country: JP (occurrence: JP)
  Receive Date: 20160610
  Receipt Date: 20160801
  Transmission Date: 20161109
  Serious: Yes (Hospitalization)
  Sender: FDA-Public Use
  Company Number: JP-NOVOPROD-405107

PATIENT
  Age: 33 Year
  Sex: Female
  Weight: 48 kg

DRUGS (13)
  1. LEVEMIR [Suspect]
     Active Substance: INSULIN DETEMIR
     Indication: TYPE 1 DIABETES MELLITUS
     Dosage: 10 IU, QD (5-0-0-5IU)
     Route: 058
     Dates: start: 201312
  2. MAGMITT [Concomitant]
     Active Substance: MAGNESIUM OXIDE
     Indication: CONSTIPATION
     Dosage: 330 MG, TID
     Route: 048
  3. NOVORAPID [Suspect]
     Active Substance: INSULIN ASPART
     Dosage: 24 IU, QD (13-4-7IU)
     Route: 058
     Dates: start: 20140116
  4. FOLIAMIN [Concomitant]
     Active Substance: FOLIC ACID
     Indication: PREGNANCY
     Dosage: 5 MG, QD
     Route: 048
  5. LEVEMIR [Suspect]
     Active Substance: INSULIN DETEMIR
     Dosage: 12 IU, QD (6-0-0-6IU)
     Route: 058
     Dates: start: 20131217
  6. NOVORAPID [Suspect]
     Active Substance: INSULIN ASPART
     Dosage: UNK
     Route: 058
  7. LEVEMIR [Suspect]
     Active Substance: INSULIN DETEMIR
     Dosage: 15 IU, QD (7-0-8IU)
     Route: 058
     Dates: start: 20140116
  8. CARDENALIN [Concomitant]
     Active Substance: DOXAZOSIN MESYLATE
     Indication: HYPERTENSION
     Dosage: 2 MG, QD
     Route: 048
  9. NOVORAPID [Suspect]
     Active Substance: INSULIN ASPART
     Dosage: 23 IU, QD (10-4-9 IU)
     Route: 058
     Dates: start: 20131217
  10. HUMULIN R [Suspect]
     Active Substance: INSULIN HUMAN
     Indication: TYPE 1 DIABETES MELLITUS
     Dosage: UNK
     Route: 042
     Dates: start: 20140205, end: 20140521
  11. NOVORAPID [Suspect]
     Active Substance: INSULIN ASPART
     Indication: TYPE 1 DIABETES MELLITUS
     Dosage: 6 IU, TID
     Route: 058
  12. NOVORAPID [Suspect]
     Active Substance: INSULIN ASPART
     Dosage: 19 IU, QD (7-6-6)
     Route: 058
     Dates: start: 20140609
  13. BAYASPIRIN [Concomitant]
     Active Substance: ASPIRIN
     Dosage: 100 MG, QD
     Route: 048

REACTIONS (6)
  - Exposure during pregnancy [Recovered/Resolved]
  - Blood pressure increased [Recovered/Resolved]
  - Hospitalisation [Recovered/Resolved]
  - Hospitalisation [Recovered/Resolved]
  - Oedema peripheral [Recovered/Resolved]
  - Condition aggravated [Recovered/Resolved]

NARRATIVE: CASE EVENT DATE: 201312
